FAERS Safety Report 5797677-5 (Version None)
Quarter: 2008Q3

REPORT INFORMATION
  Report Type: 
  Country: None (occurrence: None)
  Receive Date: 20080702
  Receipt Date: 20080623
  Transmission Date: 20090109
  Serious: Yes (Other)
  Sender: FDA-Public Use
  Company Number: US-JNJFOC-20080605697

PATIENT
  Sex: Female

DRUGS (5)
  1. MONISTAT-3 COMBINATION PACK [Suspect]
     Route: 067
  2. MONISTAT 3 COMBINATION PACK [Suspect]
     Indication: FUNGAL INFECTION
     Route: 067
  3. MONISTAT-3 COMBINATION PACK [Suspect]
     Route: 061
  4. MONISTAT-3 COMBINATION PACK [Suspect]
     Route: 061
  5. TAMOXIFEN CITRATE [Concomitant]

REACTIONS (1)
  - CELLULITIS [None]
